FAERS Safety Report 21052715 (Version 1)
Quarter: 2022Q3

REPORT INFORMATION
  Report Type: Spontaneous
  Country: US (occurrence: US)
  Receive Date: 20220707
  Receipt Date: 20220707
  Transmission Date: 20221026
  Serious: No
  Sender: FDA-Public Use
  Company Number: US-GALDERMA-US2022008214

PATIENT

DRUGS (1)
  1. DIFFERIN GEL [Suspect]
     Active Substance: ADAPALENE
     Indication: Acne
     Dosage: 1 DOSAGE FORM, QD, EVERY NIGHT
     Route: 061
     Dates: start: 20220531

REACTIONS (4)
  - Dry skin [Not Recovered/Not Resolved]
  - Periorbital irritation [Not Recovered/Not Resolved]
  - Eyelid skin dryness [Not Recovered/Not Resolved]
  - Eyelid irritation [Not Recovered/Not Resolved]

NARRATIVE: CASE EVENT DATE: 20220609
